FAERS Safety Report 8532777-8 (Version None)
Quarter: 2012Q3

REPORT INFORMATION
  Report Type: 
  Country: None (occurrence: None)
  Receive Date: 20120711
  Receipt Date: 20110912
  Transmission Date: 20120928
  Serious: Yes (Other)
  Sender: FDA-Public Use
  Company Number: C11-036

PATIENT
  Age: 64 Year
  Sex: Male
  Weight: 87.0906 kg

DRUGS (3)
  1. PENICILLIN G [Suspect]
     Dosage: DROP, PUNCTURE; ONCE, 023
     Dates: start: 20110909
  2. PRE-PEN ALLERQUEST LLC [Suspect]
     Indication: ALLERGY TEST
     Dosage: DROP, PUNCTURE; ONCE, 023
     Dates: start: 20110909
  3. AMOXICILLIN [Suspect]
     Dosage: 400MG, ONCE, 064
     Dates: start: 20110909

REACTIONS (6)
  - HEART RATE DECREASED [None]
  - BLOOD PRESSURE DIASTOLIC DECREASED [None]
  - DIZZINESS [None]
  - INJECTION SITE REACTION [None]
  - FLUSHING [None]
  - BLOOD PRESSURE SYSTOLIC INCREASED [None]
